FAERS Safety Report 6713555-9 (Version None)
Quarter: 2010Q2

REPORT INFORMATION
  Report Type: 
  Country: None (occurrence: None)
  Receive Date: 20100506
  Receipt Date: 20100427
  Transmission Date: 20101027
  Serious: Yes (Other)
  Sender: FDA-Public Use
  Company Number: US-SANOFI-AVENTIS-2010SA024849

PATIENT
  Age: 50 Year
  Sex: Female

DRUGS (7)
  1. LANTUS [Suspect]
     Indication: TYPE 2 DIABETES MELLITUS
     Dosage: DOSE:55 UNIT(S)
     Route: 058
     Dates: start: 20050101
  2. OPTICLICK [Suspect]
     Dates: start: 20050501
  3. APIDRA [Concomitant]
     Dosage: DOSE:19 UNIT(S)
     Route: 058
     Dates: start: 20080101
  4. METFORMIN [Concomitant]
  5. LISINOPRIL [Concomitant]
  6. SYNTHROID [Concomitant]
  7. EFFEXOR [Concomitant]

REACTIONS (1)
  - CHOLECYSTECTOMY [None]
